FAERS Safety Report 7759866-X (Version None)
Quarter: 2011Q3

REPORT INFORMATION
  Report Type: 
  Country: None (occurrence: None)
  Receive Date: 20110919
  Receipt Date: 20110908
  Transmission Date: 20111222
  Serious: Yes (Other)
  Sender: FDA-Public Use
  Company Number: US-JNJFOC-20110609462

PATIENT
  Sex: Female

DRUGS (7)
  1. REMICADE [Suspect]
     Dosage: 5 MG/KG
     Route: 042
     Dates: start: 20110603
  2. LIALDA [Concomitant]
     Indication: CROHN'S DISEASE
  3. REMICADE [Suspect]
     Indication: CROHN'S DISEASE
     Route: 042
     Dates: start: 20110606
  4. REMICADE [Suspect]
     Indication: COLITIS ULCERATIVE
     Route: 042
     Dates: start: 20110606
  5. REMICADE [Suspect]
     Dosage: 5 MG/KG
     Route: 042
     Dates: start: 20110603
  6. ROWASA [Concomitant]
  7. ENTOCORT EC [Concomitant]
     Indication: CROHN'S DISEASE

REACTIONS (2)
  - SYNCOPE [None]
  - URTICARIA [None]
